FAERS Safety Report 7830742-7 (Version None)
Quarter: 2011Q4

REPORT INFORMATION
  Report Type: 
  Country: None (occurrence: None)
  Receive Date: 20111021
  Receipt Date: 20111007
  Transmission Date: 20120403
  Serious: Yes (Hospitalization)
  Sender: FDA-Public Use
  Company Number: DE-UCBSA-025861

PATIENT
  Age: 79 Year
  Sex: Female
  Weight: 65 kg

DRUGS (7)
  1. IBUPROFEN [Concomitant]
     Dosage: FREQUENCY: 3/2 PER DAY. DAILY DOSE: 180 MG/1200 MG
  2. ACETAMINOPHEN [Concomitant]
  3. VIMPAT [Suspect]
     Indication: EPILEPSY
     Dates: start: 20101207, end: 20110308
  4. CORTISONE ACETATE [Concomitant]
     Dates: start: 20101207
  5. CARBAMAZEPINE [Concomitant]
  6. PREDNISOLONE [Concomitant]
  7. PANTOPRAZOLE SODIUM [Concomitant]

REACTIONS (3)
  - GRAND MAL CONVULSION [None]
  - SYNCOPE [None]
  - FOREARM FRACTURE [None]
